FAERS Safety Report 7305304-0 (Version None)
Quarter: 2011Q1

REPORT INFORMATION
  Report Type: 
  Country: None (occurrence: None)
  Receive Date: 20110222
  Receipt Date: 20110209
  Transmission Date: 20110831
  Serious: Yes (Other)
  Sender: FDA-Public Use
  Company Number: HR-ELI_LILLY_AND_COMPANY-HR201102002631

PATIENT
  Age: 54 Year
  Sex: Female

DRUGS (4)
  1. ESTRADIOL [Concomitant]
     Indication: HORMONE REPLACEMENT THERAPY
     Dosage: 1 MG, DAILY (1/D)
     Route: 048
     Dates: start: 20070101
  2. PIRAMIL [Concomitant]
     Indication: HYPERTENSION
     Dosage: 1.25 MG, DAILY (1/D)
     Route: 048
     Dates: start: 20070101
  3. TRAMUNDIN [Interacting]
     Indication: PAIN
     Dosage: 100 MG, DAILY (1/D)
     Dates: start: 20110110, end: 20110111
  4. CYMBALTA [Suspect]
     Dosage: 30 MG, DAILY (1/D)
     Route: 048
     Dates: start: 20110110, end: 20110111

REACTIONS (6)
  - NAUSEA [None]
  - VOMITING [None]
  - SEROTONIN SYNDROME [None]
  - VERTIGO [None]
  - HYPOTENSION [None]
  - DRUG INTERACTION [None]
